FAERS Safety Report 4829865-6 (Version None)
Quarter: 2005Q4

REPORT INFORMATION
  Report Type: 
  Country: None (occurrence: None)
  Receive Date: 20051115
  Receipt Date: 20051102
  Transmission Date: 20060501
  Serious: Yes (Other)
  Sender: FDA-Public Use
  Company Number: 2005151232

PATIENT
  Sex: Female
  Weight: 61.2356 kg

DRUGS (2)
  1. NEURONTIN [Suspect]
     Indication: NEURALGIA
     Dates: start: 19990101
  2. NEURONTIN [Suspect]
     Indication: SLEEP DISORDER
     Dates: start: 19990101

REACTIONS (6)
  - DIARRHOEA [None]
  - DRUG INEFFECTIVE [None]
  - DYSGEUSIA [None]
  - FEELING ABNORMAL [None]
  - INFLAMMATION [None]
  - WEIGHT INCREASED [None]
